FAERS Safety Report 9242603 (Version 1)
Quarter: 2013Q2

REPORT INFORMATION
  Report Type: Spontaneous
  Country: BE (occurrence: BE)
  Receive Date: 20130419
  Receipt Date: 20130419
  Transmission Date: 20140414
  Serious: Yes (Life-Threatening, Hospitalization)
  Sender: FDA-Public Use
  Company Number: BE-BRISTOL-MYERS SQUIBB COMPANY-18793489

PATIENT
  Age: 88 Year
  Sex: Male

DRUGS (8)
  1. GLUCOPHAGE [Suspect]
     Indication: TYPE 2 DIABETES MELLITUS
     Dosage: MAR2011 -18FEB2013?18FEB2013-UNK:850 MG,3IN1D?10MAR2013-ONGOING
     Route: 048
     Dates: start: 201103
  2. GLICLAZIDE [Concomitant]
     Indication: TYPE 2 DIABETES MELLITUS
     Dosage: MAR11-22FEB13:240MG,3IN1D?22FEB13-ONG::80MG,1IN1D
     Route: 048
     Dates: start: 201103
  3. PROLOPA [Concomitant]
     Indication: PARKINSON^S DISEASE
     Route: 048
     Dates: start: 201102
  4. CYMBALTA [Concomitant]
     Indication: DEPRESSION
     Route: 048
     Dates: start: 20130228
  5. NEXIAM [Concomitant]
     Indication: DIAPHRAGMATIC HERNIA
     Route: 048
     Dates: start: 20130212
  6. FRUMIL [Concomitant]
     Indication: HYPERTENSION
     Dosage: 1DF:40MG/5MG
     Route: 048
  7. DIFLUCAN [Concomitant]
     Indication: ORAL CANDIDIASIS
     Route: 048
     Dates: start: 20130225, end: 20130303
  8. ZOCOR [Concomitant]
     Route: 048

REACTIONS (4)
  - Septic shock [Recovering/Resolving]
  - Metabolic acidosis [Recovering/Resolving]
  - Diarrhoea [Recovering/Resolving]
  - Vomiting [Recovering/Resolving]
